FAERS Safety Report 4429699-0 (Version None)
Quarter: 2004Q3

REPORT INFORMATION
  Report Type: 
  Country: None (occurrence: None)
  Receive Date: 20040816
  Receipt Date: 20040803
  Transmission Date: 20050211
  Serious: Yes (Other)
  Sender: FDA-Public Use
  Company Number: 2004053274

PATIENT
  Age: 76 Year
  Sex: Female

DRUGS (7)
  1. LIPITOR [Suspect]
     Indication: ILL-DEFINED DISORDER
     Dosage: 20 MG (20 MG, 1 IN 1 D), ORAL
     Route: 048
  2. AMITRIPTYLINE HCL [Concomitant]
  3. DOCUSATE (DOCUSATE) [Concomitant]
  4. LABETALOL HCL [Concomitant]
  5. FUROSEMIDE [Concomitant]
  6. DOMPERIDONE (DOMPERIDONE) [Concomitant]
  7. AMLODIPINE [Concomitant]

REACTIONS (5)
  - ALANINE AMINOTRANSFERASE INCREASED [None]
  - ASPARTATE AMINOTRANSFERASE INCREASED [None]
  - BLOOD LACTATE DEHYDROGENASE INCREASED [None]
  - RENAL FAILURE ACUTE [None]
  - RHABDOMYOLYSIS [None]
